FAERS Safety Report 5828080-7 (Version None)
Quarter: 2008Q3

REPORT INFORMATION
  Report Type: 
  Country: None (occurrence: None)
  Receive Date: 20080730
  Receipt Date: 20070829
  Transmission Date: 20090109
  Serious: No
  Sender: FDA-Public Use
  Company Number: A0677370A

PATIENT
  Sex: Male

DRUGS (2)
  1. ZANTAC [Suspect]
     Dosage: 1ML TWICE PER DAY
     Route: 048
     Dates: start: 20070601
  2. PREVACID [Concomitant]

REACTIONS (3)
  - DRUG INEFFECTIVE [None]
  - RASH [None]
  - WEIGHT INCREASED [None]
